FAERS Safety Report 8829924 (Version 1)
Quarter: 2012Q4

REPORT INFORMATION
  Report Type: 
  Country: US (occurrence: US)
  Receive Date: 20121008
  Receipt Date: 20121008
  Transmission Date: 20130627
  Serious: Yes (Hospitalization, Other)
  Sender: FDA-Public Use
  Company Number: US-ROCHE-1136886

PATIENT
  Sex: Male

DRUGS (11)
  1. RITUXAN [Suspect]
     Indication: PRODUCT USED FOR UNKNOWN INDICATION
     Route: 065
  2. RITUXAN [Suspect]
     Route: 065
     Dates: start: 20030716
  3. BLEOMYCIN [Concomitant]
  4. ADRIAMYCIN [Concomitant]
  5. VINBLASTINE [Concomitant]
  6. ETOPOSIDE [Concomitant]
  7. DOXORUBICIN [Concomitant]
  8. VINCRISTINE [Concomitant]
  9. PREDNISONE [Concomitant]
  10. CYCLOPHOSPHAMIDE [Concomitant]
  11. DACARBAZINE [Concomitant]

REACTIONS (7)
  - Pneumonia [Unknown]
  - Neutropenia [Unknown]
  - Lymphadenopathy mediastinal [Not Recovered/Not Resolved]
  - Lymphadenopathy [Unknown]
  - Osteolysis [Unknown]
  - Night sweats [Unknown]
  - Weight decreased [Unknown]
